FAERS Safety Report 19922654 (Version 1)
Quarter: 2021Q4

REPORT INFORMATION
  Report Type: Spontaneous
  Country: US (occurrence: US)
  Receive Date: 20211005
  Receipt Date: 20211005
  Transmission Date: 20220304
  Serious: Yes (Life-Threatening)
  Sender: FDA-Public Use
  Company Number: None

PATIENT
  Age: 43 Year
  Sex: Male
  Weight: 82 kg

DRUGS (1)
  1. DEFINITY [Suspect]
     Active Substance: PERFLUTREN
     Indication: Cardiac ventricular thrombosis
     Dosage: ?          OTHER FREQUENCY:USED ONCE;
     Route: 042

REACTIONS (3)
  - Respiratory failure [None]
  - Unresponsive to stimuli [None]
  - Agonal respiration [None]

NARRATIVE: CASE EVENT DATE: 20211005
